FAERS Safety Report 4907909-0 (Version None)
Quarter: 2006Q1

REPORT INFORMATION
  Report Type: 
  Country: None (occurrence: None)
  Receive Date: 20060210
  Receipt Date: 20050131
  Transmission Date: 20060701
  Serious: No
  Sender: FDA-Public Use
  Company Number: US-BRISTOL-MYERS SQUIBB COMPANY-12843264

PATIENT
  Age: 91 Year
  Sex: Male

DRUGS (2)
  1. ULTRAVATE [Suspect]
     Indication: SKIN BURNING SENSATION
  2. ULTRAVATE [Suspect]
     Indication: PRURITUS

REACTIONS (1)
  - DRUG INEFFECTIVE [None]
